FAERS Safety Report 10256177 (Version 1)
Quarter: 2014Q2

REPORT INFORMATION
  Report Type: Spontaneous
  Country: CO (occurrence: CO)
  Receive Date: 20140624
  Receipt Date: 20140624
  Transmission Date: 20141212
  Serious: Yes (Other)
  Sender: FDA-Public Use
  Company Number: CO-PFIZER INC-2014171532

PATIENT
  Age: 17 Year
  Sex: Female

DRUGS (1)
  1. GENOTROPIN [Suspect]
     Indication: BODY HEIGHT DECREASED
     Dosage: UNK
     Route: 058
     Dates: start: 2011, end: 2014

REACTIONS (2)
  - Kidney transplant rejection [Unknown]
  - Off label use [Unknown]
